FAERS Safety Report 11314008 (Version 2)
Quarter: 2015Q3

REPORT INFORMATION
  Report Type: Spontaneous
  Country: GB (occurrence: GB)
  Receive Date: 20150727
  Receipt Date: 20150806
  Transmission Date: 20151125
  Serious: Yes (Life-Threatening, Hospitalization, Other)
  Sender: FDA-Public Use
  Company Number: GB-PFIZER INC-2015244597

PATIENT
  Age: 45 Year
  Sex: Male

DRUGS (3)
  1. NALOXONE [Suspect]
     Active Substance: NALOXONE
     Dosage: 0.4 MG, TWO DOSES
     Route: 042
  2. NALOXONE [Suspect]
     Active Substance: NALOXONE
     Dosage: 0.4 UNK, TWO DOSES
  3. NALOXONE [Suspect]
     Active Substance: NALOXONE
     Dosage: 0.4 MG, TWO DOSES
     Route: 042

REACTIONS (2)
  - Ventricular fibrillation [Recovering/Resolving]
  - Ventricular fibrillation [Recovered/Resolved]
